FAERS Safety Report 5658524-5 (Version None)
Quarter: 2008Q1

REPORT INFORMATION
  Report Type: 
  Country: None (occurrence: None)
  Receive Date: 20080310
  Receipt Date: 20070301
  Transmission Date: 20080703
  Serious: No
  Sender: FDA-Public Use
  Company Number: US-BAYER-200710653BCC

PATIENT
  Sex: Female
  Weight: 95 kg

DRUGS (4)
  1. ALEVE [Suspect]
     Indication: ARTHRITIS
     Dosage: TOTAL DAILY DOSE: 220 MG  UNIT DOSE: 220 MG
     Route: 048
  2. SHARK PILL FOR CALCIUM [Concomitant]
  3. ADVIL [Concomitant]
  4. DIOVAN [Concomitant]

REACTIONS (2)
  - DIZZINESS [None]
  - NAUSEA [None]
